FAERS Safety Report 9269587 (Version 1)
Quarter: 2013Q2

REPORT INFORMATION
  Report Type: Report from Study
  Country: CA (occurrence: CA)
  Receive Date: 20130503
  Receipt Date: 20130503
  Transmission Date: 20140414
  Serious: Yes (Hospitalization)
  Sender: FDA-Public Use
  Company Number: CA-ABBOTT-13P-028-1083406-00

PATIENT
  Age: 44 Year
  Sex: Male
  Weight: 97.61 kg

DRUGS (3)
  1. HUMIRA [Suspect]
     Indication: CROHN^S DISEASE
     Route: 058
     Dates: start: 20130131, end: 20130423
  2. HUMIRA [Suspect]
     Dates: start: 20130424
  3. ANTACIDS [Concomitant]
     Indication: EPIGASTRIC DISCOMFORT
     Route: 048

REACTIONS (2)
  - Post procedural haemorrhage [Recovering/Resolving]
  - Ulcer [Not Recovered/Not Resolved]
